FAERS Safety Report 7834055 (Version 2)
Quarter: 2017Q4

REPORT INFORMATION
  Report Type: Report from Study
  Country: US (occurrence: US)
  Receive Date: 20110228
  Receipt Date: 20171218
  Transmission Date: 20180321
  Serious: Yes (Death, Hospitalization, Other)
  Sender: FDA-Public Use
  Company Number: PHHO2011US02389

PATIENT
  Age: 70 Year
  Sex: Female
  Weight: 69.4 kg

DRUGS (5)
  1. GLEEVEC [Suspect]
     Active Substance: IMATINIB MESYLATE
     Indication: ACUTE MYELOID LEUKAEMIA
     Dosage: 800 MG, DAILY
     Route: 048
     Dates: start: 20110119, end: 20110130
  2. CYTARABINE. [Concomitant]
     Active Substance: CYTARABINE
     Indication: PRODUCT USED FOR UNKNOWN INDICATION
     Route: 065
  3. G-CSF [Concomitant]
     Active Substance: GRANULOCYTE COLONY-STIMULATING FACTOR NOS
     Indication: PRODUCT USED FOR UNKNOWN INDICATION
     Route: 065
  4. BENADRYL [Concomitant]
     Active Substance: DIPHENHYDRAMINE HYDROCHLORIDE
  5. ATIVAN [Concomitant]
     Active Substance: LORAZEPAM

REACTIONS (12)
  - Pleural effusion [Unknown]
  - Acute respiratory distress syndrome [Fatal]
  - Pulmonary haemorrhage [Fatal]
  - Pneumonia fungal [Unknown]
  - Hypoxia [Fatal]
  - Disorientation [Fatal]
  - Somnolence [Fatal]
  - Delirium [Fatal]
  - Febrile neutropenia [Unknown]
  - Pneumonia [Unknown]
  - Mental status changes [Fatal]
  - General physical health deterioration [Unknown]

NARRATIVE: CASE EVENT DATE: 20110131
